FAERS Safety Report 4611397-1 (Version None)
Quarter: 2005Q2

REPORT INFORMATION
  Report Type: 
  Country: None (occurrence: None)
  Receive Date: 20050311
  Receipt Date: 20041228
  Transmission Date: 20051028
  Serious: No
  Sender: FDA-Public Use
  Company Number: 2004-BP-14534BP

PATIENT
  Age: 66 Year
  Sex: Female

DRUGS (2)
  1. SPIRIVA [Suspect]
     Indication: CHRONIC OBSTRUCTIVE PULMONARY DISEASE
     Dosage: 18 MCG (18 MCG, 1 CAPSULE QD), IH
     Route: 055
  2. SPIRIVA [Suspect]

REACTIONS (2)
  - AGEUSIA [None]
  - DRUG INEFFECTIVE [None]
